FAERS Safety Report 12820178 (Version 2)
Quarter: 2018Q3

REPORT INFORMATION
  Report Type: Spontaneous
  Country: JP (occurrence: JP)
  Receive Date: 20161006
  Receipt Date: 20180925
  Transmission Date: 20181010
  Serious: Yes (Death)
  Sender: FDA-Public Use
  Company Number: PHJP2016JP028357

PATIENT
  Age: 84 Year
  Sex: Male

DRUGS (1)
  1. SANDOSTATIN [Suspect]
     Active Substance: OCTREOTIDE ACETATE
     Indication: PANCREATIC LEAK
     Dosage: 300 UG, QD
     Route: 058
     Dates: start: 20160916

REACTIONS (3)
  - Bradycardia [Fatal]
  - Cardiac arrest [Fatal]
  - Product use in unapproved indication [Unknown]

NARRATIVE: CASE EVENT DATE: 20160916
